FAERS Safety Report 8982197 (Version 3)
Quarter: 2013Q1

REPORT INFORMATION
  Report Type: Report from Study
  Country: US (occurrence: US)
  Receive Date: 20121222
  Receipt Date: 20130322
  Transmission Date: 20140127
  Serious: Yes (Hospitalization, Other)
  Sender: FDA-Public Use
  Company Number: US-US-EMD SERONO, INC.-7183187

PATIENT
  Sex: Female

DRUGS (3)
  1. REBIF [Suspect]
     Indication: MULTIPLE SCLEROSIS
     Route: 058
     Dates: start: 20121107
  2. REBIF [Suspect]
     Route: 058
     Dates: start: 20121226
  3. POTASSIUM [Concomitant]
     Indication: PRODUCT USED FOR UNKNOWN INDICATION
     Route: 048

REACTIONS (8)
  - Uterine neoplasm [Recovering/Resolving]
  - Uterine leiomyoma [Recovering/Resolving]
  - Dysuria [Recovering/Resolving]
  - Gait disturbance [Recovering/Resolving]
  - Hot flush [Recovering/Resolving]
  - Weight decreased [Not Recovered/Not Resolved]
  - Influenza like illness [Recovered/Resolved]
  - Fatigue [Unknown]
